FAERS Safety Report 6048259-1 (Version None)
Quarter: 2009Q1

REPORT INFORMATION
  Report Type: 
  Country: None (occurrence: None)
  Receive Date: 20090123
  Receipt Date: 20090119
  Transmission Date: 20090719
  Serious: Yes (Hospitalization)
  Sender: FDA-Public Use
  Company Number: FR-BRISTOL-MYERS SQUIBB COMPANY-14476113

PATIENT
  Age: 70 Year
  Sex: Female

DRUGS (1)
  1. ABILIFY [Suspect]
     Indication: BIPOLAR DISORDER
     Dates: end: 20081031

REACTIONS (5)
  - CONFUSIONAL STATE [None]
  - HYPOMANIA [None]
  - IRRITABILITY [None]
  - SLEEP DISORDER [None]
  - TREATMENT NONCOMPLIANCE [None]
